FAERS Safety Report 7455609-8 (Version None)
Quarter: 2011Q2

REPORT INFORMATION
  Report Type: 
  Country: None (occurrence: None)
  Receive Date: 20110503
  Receipt Date: 20110419
  Transmission Date: 20111010
  Serious: Yes (Death)
  Sender: FDA-Public Use
  Company Number: DE-ROCHE-773921

PATIENT
  Age: 54 Year
  Sex: Male
  Weight: 76 kg

DRUGS (3)
  1. GEMZAR [Concomitant]
     Dates: start: 20100906, end: 20101129
  2. BEVACIZUMAB [Suspect]
     Dosage: 15
     Route: 065
     Dates: start: 20100906, end: 20101129
  3. CISPLATIN [Concomitant]
     Dates: start: 20100906, end: 20101129

REACTIONS (1)
  - NO THERAPEUTIC RESPONSE [None]
